FAERS Safety Report 6524520-9 (Version None)
Quarter: 2010Q1

REPORT INFORMATION
  Report Type: 
  Country: None (occurrence: None)
  Receive Date: 20100104
  Receipt Date: 20091207
  Transmission Date: 20100710
  Serious: No
  Sender: FDA-Public Use
  Company Number: FR-ROCHE-676103

PATIENT
  Sex: Male

DRUGS (2)
  1. TAMIFLU [Suspect]
     Dosage: MEDICATION ERROR
     Route: 065
  2. TAMIFLU [Suspect]
     Route: 065

REACTIONS (2)
  - MEDICATION ERROR [None]
  - NO ADVERSE EVENT [None]
